FAERS Safety Report 15632390 (Version 1)
Quarter: 2018Q4

REPORT INFORMATION
  Report Type: Spontaneous
  Country: US (occurrence: US)
  Receive Date: 20181119
  Receipt Date: 20181119
  Transmission Date: 20190205
  Serious: Yes (Other)
  Sender: FDA-Public Use
  Company Number: None

PATIENT
  Age: 62 Year
  Sex: Male
  Weight: 140.2 kg

DRUGS (1)
  1. BASAGLAR [Suspect]
     Active Substance: INSULIN GLARGINE
     Indication: TYPE 2 DIABETES MELLITUS
     Route: 058
     Dates: start: 20180425, end: 20181106

REACTIONS (4)
  - Blood glucose increased [None]
  - Insurance issue [None]
  - Glycosylated haemoglobin increased [None]
  - Drug ineffective [None]

NARRATIVE: CASE EVENT DATE: 20181106
